FAERS Safety Report 6403735-4 (Version None)
Quarter: 2009Q4

REPORT INFORMATION
  Report Type: 
  Country: None (occurrence: None)
  Receive Date: 20091015
  Receipt Date: 20091015
  Transmission Date: 20100525
  Serious: Yes (Other)
  Sender: FDA-Public Use
  Company Number: None

PATIENT
  Sex: Female
  Weight: 54.4316 kg

DRUGS (1)
  1. ACYCLOVIR [Suspect]
     Indication: VIRAL INFECTION
     Dosage: 400MG BID PO
     Route: 048
     Dates: start: 20090609, end: 20090612

REACTIONS (1)
  - VISION BLURRED [None]
